FAERS Safety Report 7533490 (Version 3)
Quarter: 2012Q4

REPORT INFORMATION
  Report Type: 
  Country: BR (occurrence: BR)
  Receive Date: 20100809
  Receipt Date: 20121008
  Transmission Date: 20130627
  Serious: Yes (Other)
  Sender: FDA-Public Use
  Company Number: PHHY2010BR49391

PATIENT
  Sex: Male

DRUGS (1)
  1. AFINITOR [Suspect]
     Route: 048

REACTIONS (1)
  - Gastrointestinal haemorrhage [Unknown]
